FAERS Safety Report 10091593 (Version 1)
Quarter: 2014Q2

REPORT INFORMATION
  Report Type: Spontaneous
  Country: US (occurrence: US)
  Receive Date: 20140421
  Receipt Date: 20140421
  Transmission Date: 20141212
  Serious: Yes (Hospitalization)
  Sender: FDA-Public Use
  Company Number: US-ABBVIE-14P-163-1225533-00

PATIENT
  Age: 61 Year
  Sex: Female
  Weight: 86.26 kg

DRUGS (12)
  1. HUMIRA [Suspect]
     Indication: RHEUMATOID ARTHRITIS
     Route: 058
     Dates: start: 2009, end: 201401
  2. ALBUTEROL [Concomitant]
     Indication: ASTHMA
  3. CALCIUM + VIT D [Concomitant]
     Indication: VITAMIN SUPPLEMENTATION
  4. FLAX SEED OIL [Concomitant]
     Indication: NUTRITIONAL SUPPLEMENTATION
  5. HCTZ [Concomitant]
     Indication: PRODUCT USED FOR UNKNOWN INDICATION
  6. LIPITOR [Concomitant]
     Indication: PRODUCT USED FOR UNKNOWN INDICATION
  7. AVAPRO [Concomitant]
     Indication: HYPERTENSION
  8. NEXIUM [Concomitant]
     Indication: PRODUCT USED FOR UNKNOWN INDICATION
  9. MULTIVITAMIN [Concomitant]
     Indication: VITAMIN SUPPLEMENTATION
  10. PROVENTIL [Concomitant]
     Indication: PRODUCT USED FOR UNKNOWN INDICATION
  11. SINGULAIR [Concomitant]
     Indication: PRODUCT USED FOR UNKNOWN INDICATION
  12. TRAMADOL [Concomitant]
     Indication: PAIN

REACTIONS (2)
  - Pulmonary thrombosis [Recovering/Resolving]
  - Pulmonary embolism [Recovering/Resolving]
